FAERS Safety Report 7025665-X (Version None)
Quarter: 2010Q4

REPORT INFORMATION
  Report Type: 
  Country: None (occurrence: None)
  Receive Date: 20101004
  Receipt Date: 20100914
  Transmission Date: 20110411
  Serious: Yes (Hospitalization)
  Sender: FDA-Public Use
  Company Number: US-BAYER-201019756NA

PATIENT
  Age: 42 Year
  Sex: Female
  Weight: 86 kg

DRUGS (7)
  1. YAZ [Suspect]
     Indication: PRODUCT USED FOR UNKNOWN INDICATION
     Route: 048
  2. YASMIN [Suspect]
     Indication: PRODUCT USED FOR UNKNOWN INDICATION
     Route: 048
  3. DROSPIRENONE AND ETHINYL ESTRADIOL [Suspect]
     Indication: PRODUCT USED FOR UNKNOWN INDICATION
  4. CALAN SLOW RELEASE [Concomitant]
     Route: 048
     Dates: start: 19990101
  5. WATERPILL [Concomitant]
     Dates: start: 19990101
  6. LIPITOR [Concomitant]
     Route: 048
     Dates: start: 20050101
  7. MAXZIDE [Concomitant]
     Dosage: 1 TABLET PER DAY
     Route: 048

REACTIONS (3)
  - DYSPNOEA [None]
  - PLEURITIC PAIN [None]
  - PULMONARY EMBOLISM [None]
